FAERS Safety Report 5266100-1 (Version None)
Quarter: 2007Q1

REPORT INFORMATION
  Report Type: 
  Country: None (occurrence: None)
  Receive Date: 20070315
  Receipt Date: 20070312
  Transmission Date: 20070707
  Serious: Yes (Life-Threatening)
  Sender: FDA-Public Use
  Company Number: 2007AP01503

PATIENT
  Age: 82 Year
  Sex: Male
  Weight: 75 kg

DRUGS (3)
  1. OMEPRAZOLE [Suspect]
     Indication: OESOPHAGEAL DISORDER
     Route: 048
     Dates: start: 20061019, end: 20061021
  2. LASIX [Concomitant]
     Route: 048
  3. LASIX [Concomitant]
     Route: 048

REACTIONS (1)
  - OLIGURIA [None]
